FAERS Safety Report 24897005 (Version 2)
Quarter: 2025Q1

REPORT INFORMATION
  Report Type: Spontaneous
  Country: FR (occurrence: FR)
  Receive Date: 20250128
  Receipt Date: 20250224
  Transmission Date: 20250409
  Serious: No
  Sender: UCB
  Company Number: FR-UCBSA-2025001361

PATIENT
  Age: 90 Year
  Sex: Male

DRUGS (1)
  1. NEUPRO [Suspect]
     Active Substance: ROTIGOTINE
     Indication: Product used for unknown indication
     Route: 062
     Dates: start: 2024

REACTIONS (3)
  - Product dose omission issue [Unknown]
  - Product adhesion issue [Unknown]
  - Off label use [Unknown]

NARRATIVE: CASE EVENT DATE: 20250101
